FAERS Safety Report 14467451 (Version 2)
Quarter: 2018Q1

REPORT INFORMATION
  Report Type: Spontaneous
  Country: US (occurrence: US)
  Receive Date: 20180131
  Receipt Date: 20180209
  Transmission Date: 20180509
  Serious: Yes (Other)
  Sender: FDA-Public Use
  Company Number: US-BAYER-2018-016113

PATIENT
  Age: 67 Year
  Sex: Male

DRUGS (13)
  1. XOFIGO [Suspect]
     Active Substance: RADIUM RA-223 DICHLORIDE
     Indication: METASTASES TO BONE
     Dosage: UNK
     Dates: start: 20171025, end: 20171025
  2. XOFIGO [Suspect]
     Active Substance: RADIUM RA-223 DICHLORIDE
     Indication: METASTASES TO BONE
     Dosage: UNK
     Dates: start: 201801, end: 201801
  3. MAGNESIUM [Concomitant]
     Active Substance: MAGNESIUM
     Dosage: 250 MG
  4. XGEVA [Concomitant]
     Active Substance: DENOSUMAB
  5. MULTIVITAMIN [Concomitant]
     Active Substance: VITAMINS
  6. VITAMIN D [Concomitant]
     Active Substance: CHOLECALCIFEROL
  7. XOFIGO [Suspect]
     Active Substance: RADIUM RA-223 DICHLORIDE
     Indication: METASTASES TO BONE
     Dosage: UNK
     Dates: start: 201712, end: 201712
  8. VITAMIN C [Concomitant]
     Active Substance: ASCORBIC ACID
  9. ASPIRIN. [Concomitant]
     Active Substance: ASPIRIN
     Dosage: 81 MG
  10. LUPRON [Concomitant]
     Active Substance: LEUPROLIDE ACETATE
     Dosage: EVERY 3 MONTHS
  11. DOXYCYCLINE. [Concomitant]
     Active Substance: DOXYCYCLINE
     Dosage: 20 MG
  12. CRESTOR [Concomitant]
     Active Substance: ROSUVASTATIN CALCIUM
     Dosage: 5 MG
  13. ABIRATERONE [Concomitant]
     Active Substance: ABIRATERONE
     Dosage: UNK
     Dates: end: 201711

REACTIONS (6)
  - Lip swelling [None]
  - Haematuria [Not Recovered/Not Resolved]
  - Off label use [None]
  - Product use in unapproved indication [None]
  - Lip swelling [None]
  - Flank pain [Not Recovered/Not Resolved]

NARRATIVE: CASE EVENT DATE: 201712
